FAERS Safety Report 8377708-9 (Version None)
Quarter: 2012Q2

REPORT INFORMATION
  Report Type: 
  Country: None (occurrence: None)
  Receive Date: 20120522
  Receipt Date: 20120518
  Transmission Date: 20120825
  Serious: Yes (Death, Hospitalization)
  Sender: FDA-Public Use
  Company Number: US-GLAXOSMITHKLINE-A0978266A

PATIENT
  Age: 63 Year
  Sex: Male
  Weight: 95.3 kg

DRUGS (4)
  1. VELCADE [Suspect]
     Indication: AMYLOIDOSIS
     Dosage: 1MGM2 CYCLIC
     Route: 042
     Dates: start: 20120330
  2. DEXAMETHASONE [Suspect]
     Indication: AMYLOIDOSIS
     Dates: start: 20120309
  3. MIDODRINE HYDROCHLORIDE [Concomitant]
  4. MELPHALAN [Suspect]
     Indication: AMYLOIDOSIS
     Dosage: 70MGM2 CYCLIC
     Route: 042
     Dates: start: 20120403

REACTIONS (2)
  - GRAFT VERSUS HOST DISEASE [None]
  - GASTROINTESTINAL HAEMORRHAGE [None]
